FAERS Safety Report 18683865 (Version 1)
Quarter: 2020Q4

REPORT INFORMATION
  Report Type: Spontaneous
  Country: US (occurrence: US)
  Receive Date: 20201230
  Receipt Date: 20201230
  Transmission Date: 20210114
  Serious: No
  Sender: FDA-Public Use
  Company Number: US-EISAI MEDICAL RESEARCH-EC-2020-085604

PATIENT
  Age: 35 Year
  Sex: Female

DRUGS (4)
  1. ERIBULIN [Suspect]
     Active Substance: ERIBULIN
     Dosage: DOSE UNKNOWN (DOSE REDUCED BY 20%)
     Route: 042
  2. ERIBULIN [Suspect]
     Active Substance: ERIBULIN
     Dosage: DOSE UNKNOWN
     Route: 042
  3. ERIBULIN [Suspect]
     Active Substance: ERIBULIN
     Indication: MYXOID LIPOSARCOMA
     Dosage: DOSE UNKNOWN
     Route: 042
  4. ERIBULIN [Suspect]
     Active Substance: ERIBULIN
     Dosage: DOSE UNKNOWN, EVERY 6 WEEKS
     Route: 042

REACTIONS (2)
  - Hypothyroidism [Unknown]
  - Hepatic enzyme increased [Unknown]
